FAERS Safety Report 4780238-4 (Version None)
Quarter: 2005Q3

REPORT INFORMATION
  Report Type: 
  Country: None (occurrence: None)
  Receive Date: 20050927
  Receipt Date: 20050915
  Transmission Date: 20060218
  Serious: Yes (Hospitalization)
  Sender: FDA-Public Use
  Company Number: US-ROCHE-418077

PATIENT
  Age: 42 Year
  Sex: Female
  Weight: 72.6 kg

DRUGS (1)
  1. XELODA [Suspect]
     Dosage: ONE WEEK TREATMENT FOLLOWED BY ONE WEEK REST.
     Route: 048
     Dates: start: 20050515, end: 20050715

REACTIONS (4)
  - CHEST PAIN [None]
  - PERICARDIAL EFFUSION [None]
  - PULMONARY OEDEMA [None]
  - SWOLLEN TONGUE [None]
